FAERS Safety Report 25543126 (Version 4)
Quarter: 2025Q3

REPORT INFORMATION
  Report Type: Spontaneous
  Country: US (occurrence: US)
  Receive Date: 20250711
  Receipt Date: 20250913
  Transmission Date: 20251021
  Serious: Yes (Hospitalization)
  Sender: ACCORD
  Company Number: US-Accord-493561

PATIENT
  Age: 33 Year
  Sex: Male
  Weight: 120.0 kg

DRUGS (16)
  1. FLUOROURACIL [Suspect]
     Active Substance: FLUOROURACIL
     Indication: Colon cancer stage IV
     Dosage: Q3WEEKS
     Route: 042
     Dates: start: 20250422, end: 20250422
  2. IRINOTECAN [Suspect]
     Active Substance: IRINOTECAN
     Indication: Colon cancer stage IV
     Dosage: Q3WEEKS
     Route: 042
     Dates: start: 20250422, end: 20250422
  3. LEUCOVORIN [Suspect]
     Active Substance: LEUCOVORIN\LEUCOVORIN CALCIUM
     Indication: Colon cancer stage IV
     Dosage: Q3WEEKS
     Route: 042
     Dates: start: 20250422, end: 20250422
  4. DEXTROSE [Concomitant]
     Active Substance: DEXTROSE MONOHYDRATE
     Dates: start: 20250422
  5. SODIUM CHLORIDE [Concomitant]
     Active Substance: SODIUM CHLORIDE
     Dates: start: 20250422
  6. SODIUM CHLORIDE [Concomitant]
     Active Substance: SODIUM CHLORIDE
     Dates: start: 20250422
  7. ATROPINE [Concomitant]
     Active Substance: ATROPINE
     Dates: start: 20250422, end: 20250604
  8. INSULIN NOS [Concomitant]
     Active Substance: INSULIN NOS
     Dates: start: 20250528, end: 20250528
  9. GASTROGRAFIN [Concomitant]
     Active Substance: DIATRIZOATE MEGLUMINE\DIATRIZOATE SODIUM
     Dates: start: 20250611, end: 20250611
  10. IOPAMIDOL [Concomitant]
     Active Substance: IOPAMIDOL
     Dates: start: 20250611, end: 20250611
  11. FLUOROURACIL [Suspect]
     Active Substance: FLUOROURACIL
     Indication: Colon cancer stage IV
     Dosage: Q3WEEKS
     Route: 042
     Dates: start: 20250521, end: 20250521
  12. FLUOROURACIL [Suspect]
     Active Substance: FLUOROURACIL
     Indication: Colon cancer stage IV
     Dosage: Q3WEEKS
     Route: 042
     Dates: start: 20250604, end: 20250604
  13. IRINOTECAN [Suspect]
     Active Substance: IRINOTECAN
     Indication: Colon cancer stage IV
     Dosage: Q3WEEKS
     Route: 042
     Dates: start: 20250521, end: 20250521
  14. IRINOTECAN [Suspect]
     Active Substance: IRINOTECAN
     Indication: Colon cancer stage IV
     Dosage: Q3WEEKS
     Route: 042
     Dates: start: 20250604, end: 20250604
  15. LEUCOVORIN [Suspect]
     Active Substance: LEUCOVORIN\LEUCOVORIN CALCIUM
     Indication: Colon cancer stage IV
     Dosage: Q3WEEKS
     Route: 042
     Dates: start: 20250521, end: 20250521
  16. LEUCOVORIN [Suspect]
     Active Substance: LEUCOVORIN\LEUCOVORIN CALCIUM
     Indication: Colon cancer stage IV
     Dosage: Q3WEEKS
     Route: 042
     Dates: start: 20250604, end: 20250604

REACTIONS (2)
  - Perirectal abscess [Recovered/Resolved]
  - Bacteraemia [Recovered/Resolved]

NARRATIVE: CASE EVENT DATE: 20250617
